FAERS Safety Report 7364275-1 (Version None)
Quarter: 2011Q1

REPORT INFORMATION
  Report Type: 
  Country: None (occurrence: None)
  Receive Date: 20110321
  Receipt Date: 20110310
  Transmission Date: 20110831
  Serious: Yes (Hospitalization)
  Sender: FDA-Public Use
  Company Number: B0695195A

PATIENT
  Age: 70 Year
  Sex: Female

DRUGS (4)
  1. AMOXICILLIN AND CLAVULANATE POTASSIUM [Suspect]
     Indication: BRONCHITIS
     Dosage: 1UNIT THREE TIMES PER DAY
     Route: 048
     Dates: start: 20101102, end: 20101108
  2. CALCIUM + VITAMIN D [Concomitant]
     Route: 065
  3. CHOLESTYRAMINE [Concomitant]
     Route: 065
  4. FELODIPINE [Concomitant]
     Route: 065

REACTIONS (7)
  - JAUNDICE [None]
  - PRURITUS GENERALISED [None]
  - DIARRHOEA [None]
  - FAECES DISCOLOURED [None]
  - CHROMATURIA [None]
  - OCULAR ICTERUS [None]
  - CHOLESTASIS [None]
